FAERS Safety Report 20558536 (Version 4)
Quarter: 2022Q3

REPORT INFORMATION
  Report Type: Spontaneous
  Country: FI (occurrence: FI)
  Receive Date: 20220307
  Receipt Date: 20220714
  Transmission Date: 20221026
  Serious: No
  Sender: FDA-Public Use
  Company Number: FI-SA-SAC20220223001533

PATIENT
  Age: 34 Year
  Sex: Female

DRUGS (2)
  1. ENOXAPARIN SODIUM [Suspect]
     Active Substance: ENOXAPARIN SODIUM
     Indication: Thrombosis
     Dosage: 60 MG, QD
     Route: 058
  2. PANADOL [Concomitant]
     Active Substance: ACETAMINOPHEN

REACTIONS (1)
  - Injection site pain [Not Recovered/Not Resolved]

NARRATIVE: CASE EVENT DATE: 20220221
